FAERS Safety Report 6290597-1 (Version None)
Quarter: 2009Q3

REPORT INFORMATION
  Report Type: 
  Country: None (occurrence: None)
  Receive Date: 20090728
  Receipt Date: 20090728
  Transmission Date: 20100115
  Serious: Yes (Other)
  Sender: FDA-Public Use
  Company Number: None

PATIENT
  Age: 40 Year
  Sex: Female
  Weight: 74.8435 kg

DRUGS (5)
  1. VENLAFAXINE HYDROCHLORIDE [Suspect]
     Indication: ANXIETY
     Dosage: 50 MG 1 X DAY PO
     Route: 048
     Dates: start: 20090722, end: 20090722
  2. VENLAFAXINE HYDROCHLORIDE [Suspect]
     Indication: DEPRESSION
     Dosage: 50 MG 1 X DAY PO
     Route: 048
     Dates: start: 20090722, end: 20090722
  3. BUPROPION HCL [Suspect]
  4. EFFEXOR [Suspect]
  5. WELLBUTRIN XL [Suspect]

REACTIONS (10)
  - AGITATION [None]
  - CONVULSION [None]
  - DIAPHRAGMATIC DISORDER [None]
  - DYSPNOEA [None]
  - HYPERVENTILATION [None]
  - MUSCLE SPASMS [None]
  - PANIC REACTION [None]
  - PARAESTHESIA [None]
  - RETCHING [None]
  - TREMOR [None]
